FAERS Safety Report 4307373-9 (Version None)
Quarter: 2004Q1

REPORT INFORMATION
  Report Type: 
  Country: None (occurrence: None)
  Receive Date: 20040226
  Receipt Date: 20030916
  Transmission Date: 20041129
  Serious: Yes (Other)
  Sender: FDA-Public Use
  Company Number: 03091187

PATIENT
  Age: 42 Year
  Sex: Female

DRUGS (7)
  1. ACETAZOLAMIDE TAB [Suspect]
     Indication: BENIGN INTRACRANIAL HYPERTENSION
     Dosage: 125 MG, BID, ORAL
     Route: 048
     Dates: start: 20030601
  2. ACETAZOLAMIDE TAB [Suspect]
     Indication: BENIGN INTRACRANIAL HYPERTENSION
     Dosage: 125 MG, TID, ORAL
     Route: 048
     Dates: start: 20030729
  3. ACETAZOLAMIDE TAB [Suspect]
     Indication: BENIGN INTRACRANIAL HYPERTENSION
     Dosage: 125 MG, BID, ORAL
     Route: 048
  4. ACETYLSALICYLIC ACID SRT [Concomitant]
  5. PAXIL [Concomitant]
  6. POTASSIUM (POTASSIUM) [Concomitant]
  7. PREDNISONE (PREDNISONUM) [Concomitant]

REACTIONS (14)
  - ANXIETY [None]
  - CEREBROVASCULAR ACCIDENT [None]
  - CHEST PAIN [None]
  - DERMATITIS CONTACT [None]
  - FEELING ABNORMAL [None]
  - HEART RATE INCREASED [None]
  - PALPITATIONS [None]
  - PANIC ATTACK [None]
  - PARAESTHESIA [None]
  - PROTEIN C INCREASED [None]
  - SINUS TACHYCARDIA [None]
  - SPEECH DISORDER [None]
  - THROMBIN-ANTITHROMBIN III COMPLEX INCREASED [None]
  - WHITE BLOOD CELL COUNT INCREASED [None]
